FAERS Safety Report 16226752 (Version 1)
Quarter: 2019Q2

REPORT INFORMATION
  Report Type: Spontaneous
  Country: CA (occurrence: CA)
  Receive Date: 20190423
  Receipt Date: 20190423
  Transmission Date: 20190711
  Serious: Yes (Hospitalization, Other)
  Sender: FDA-Public Use
  Company Number: CA-ORION CORPORATION ORION PHARMA-TREX2019-1205

PATIENT
  Age: 27 Year
  Sex: Female

DRUGS (6)
  1. METHOTREXATE (TRADE NAME UNKNOWN) [Suspect]
     Active Substance: METHOTREXATE
     Indication: PRODUCT USED FOR UNKNOWN INDICATION
     Route: 065
  2. CICLOSPORIN [Suspect]
     Active Substance: CYCLOSPORINE
     Indication: PRODUCT USED FOR UNKNOWN INDICATION
     Route: 065
  3. BETAMETHASONE DIPROPIONATE/CALCIPOTRIOL [Concomitant]
     Route: 065
  4. HYDROCORTISONE. [Suspect]
     Active Substance: HYDROCORTISONE
     Indication: PRODUCT USED FOR UNKNOWN INDICATION
     Route: 065
  5. BETAMETHASONE VALERATE. [Concomitant]
     Active Substance: BETAMETHASONE VALERATE
     Route: 065
  6. COAL TAR. [Concomitant]
     Active Substance: COAL TAR
     Route: 065

REACTIONS (9)
  - Abdominal discomfort [Recovering/Resolving]
  - Pneumonia aspiration [Recovering/Resolving]
  - Pruritus [Recovering/Resolving]
  - Inappropriate schedule of product administration [Recovering/Resolving]
  - Hepatic failure [Recovering/Resolving]
  - Movement disorder [Recovering/Resolving]
  - Gallbladder disorder [Recovering/Resolving]
  - Anaemia macrocytic [Recovering/Resolving]
  - Dizziness [Recovering/Resolving]
